FAERS Safety Report 4490856-9 (Version None)
Quarter: 2004Q4

REPORT INFORMATION
  Report Type: 
  Country: None (occurrence: None)
  Receive Date: 20041024
  Receipt Date: 20041015
  Transmission Date: 20050328
  Serious: Yes (Other)
  Sender: FDA-Public Use
  Company Number: CIP04002143

PATIENT
  Age: 64 Year
  Sex: Female

DRUGS (6)
  1. RISEDRONATE SODIUM [Suspect]
     Indication: OSTEOPOROSIS
     Dosage: 2.5 MG DAILY, ORAL
     Route: 048
     Dates: start: 20040816, end: 20040101
  2. RISEDRONATE SODIUM [Suspect]
     Indication: OSTEOPOROSIS
     Dosage: 2.5 MG DAILY, ORAL
     Route: 048
     Dates: start: 20040727, end: 20040730
  3. RISEDRONATE SODIUM [Suspect]
     Indication: OSTEOPOROSIS
     Dosage: 2.5 MG DAILY, ORAL
     Route: 048
     Dates: start: 20040827, end: 20040828
  4. AMLODIPINE BESYLATE [Concomitant]
  5. ENALAPRIL MALEATE [Concomitant]
  6. OTHER COLD COMBINATION PREPARATIONS [Concomitant]

REACTIONS (11)
  - ABDOMINAL DISTENSION [None]
  - DRUG ERUPTION [None]
  - DRUG INEFFECTIVE [None]
  - HOARSENESS [None]
  - LYMPHOCYTE STIMULATION TEST POSITIVE [None]
  - PITTING OEDEMA [None]
  - PYREXIA [None]
  - RESPIRATORY DISORDER [None]
  - SWELLING FACE [None]
  - TREATMENT NONCOMPLIANCE [None]
  - URTICARIA GENERALISED [None]
